FAERS Safety Report 5848696-1 (Version None)
Quarter: 2008Q3

REPORT INFORMATION
  Report Type: 
  Country: None (occurrence: None)
  Receive Date: 20080814
  Receipt Date: 20080731
  Transmission Date: 20090109
  Serious: Yes (Other)
  Sender: FDA-Public Use
  Company Number: 2008EN000113

PATIENT
  Age: 29 Year

DRUGS (1)
  1. ONCASPAR [Suspect]
     Indication: DRUG USE FOR UNKNOWN INDICATION

REACTIONS (4)
  - ABSCESS LIMB [None]
  - JUGULAR VEIN THROMBOSIS [None]
  - PULMONARY EMBOLISM [None]
  - STAPHYLOCOCCAL BACTERAEMIA [None]
